FAERS Safety Report 4421593-4 (Version None)
Quarter: 2004Q3

REPORT INFORMATION
  Report Type: 
  Country: None (occurrence: None)
  Receive Date: 20040804
  Receipt Date: 20040721
  Transmission Date: 20050211
  Serious: Yes (Other)
  Sender: FDA-Public Use
  Company Number: AU-JNJFOC-20040706857

PATIENT
  Age: 68 Year
  Sex: Female

DRUGS (1)
  1. CAELYX (DOXORUBICIN HYDROCHLORIDE) LIPOSOME INJECTION [Suspect]
     Indication: OVARIAN CANCER
     Dosage: 50 MG/M2 X 4 CYCLES
     Dates: start: 20040201, end: 20040501

REACTIONS (3)
  - ABDOMINAL PAIN UPPER [None]
  - ABDOMINAL RIGIDITY [None]
  - GASTRIC ULCER [None]
